FAERS Safety Report 16158836 (Version 2)
Quarter: 2019Q2

REPORT INFORMATION
  Report Type: Report from Study
  Country: DE (occurrence: DE)
  Receive Date: 20190404
  Receipt Date: 20190410
  Transmission Date: 20190711
  Serious: Yes (Hospitalization)
  Sender: FDA-Public Use
  Company Number: DE-SA-2019SA086155

PATIENT
  Age: 30 Year
  Sex: Female

DRUGS (3)
  1. CORTISONE [Concomitant]
     Active Substance: CORTISONE\HYDROCORTISONE
     Dosage: UNK
     Route: 065
     Dates: start: 201903, end: 201903
  2. ACICLOVIR [Concomitant]
     Active Substance: ACYCLOVIR
     Dosage: UNK
     Route: 065
     Dates: start: 201903, end: 201903
  3. ALEMTUZUMAB [Suspect]
     Active Substance: ALEMTUZUMAB
     Indication: MULTIPLE SCLEROSIS
     Dosage: 12 MG
     Route: 041
     Dates: start: 20190304, end: 20190308

REACTIONS (5)
  - Urticaria [Unknown]
  - Product use issue [Unknown]
  - Head discomfort [Unknown]
  - Drug intolerance [Unknown]
  - Investigation abnormal [Unknown]

NARRATIVE: CASE EVENT DATE: 20190301
